FAERS Safety Report 6674030-3 (Version None)
Quarter: 2010Q2

REPORT INFORMATION
  Report Type: 
  Country: None (occurrence: None)
  Receive Date: 20100409
  Receipt Date: 20100329
  Transmission Date: 20101027
  Serious: Yes (Other)
  Sender: FDA-Public Use
  Company Number: FR-PFIZER INC-2010039865

PATIENT
  Age: 18 Year
  Sex: Female

DRUGS (5)
  1. METHYLPREDNISOLONE ACETATE [Suspect]
     Route: 042
  2. DIAZEPAM [Concomitant]
  3. AMOXICILLIN [Concomitant]
  4. SUFENTANIL [Concomitant]
  5. MEPIVACAINE [Concomitant]

REACTIONS (1)
  - ANAPHYLACTIC SHOCK [None]
